FAERS Safety Report 8319485 (Version 2)
Quarter: 2012Q4

REPORT INFORMATION
  Report Type: 
  Country: US (occurrence: None)
  Receive Date: 20111221
  Receipt Date: 20120914
  Transmission Date: 20130627
  Serious: Yes (Death)
  Sender: FDA-Public Use
  Company Number: 2011AP003061

PATIENT
  Age: 73 Year
  Sex: Male

DRUGS (3)
  1. AMIODARONE HCL [Suspect]
     Indication: DRUG USE  FOR UNKNOWN INDICATION
     Dosage: ;IV
     Route: 042
  2. AMIODARONE [Suspect]
     Indication: DRUG USE  FOR UNKNOWN INDICATION
     Dosage: ;PO
     Route: 048
  3. COLCHICINE [Suspect]
     Indication: GOUT

REACTIONS (2)
  - Diarrhoea [None]
  - Drug interaction [None]
